FAERS Safety Report 4505002-2 (Version None)
Quarter: 2004Q4

REPORT INFORMATION
  Report Type: 
  Country: None (occurrence: None)
  Receive Date: 20041116
  Receipt Date: 20041103
  Transmission Date: 20050328
  Serious: Yes (Hospitalization)
  Sender: FDA-Public Use
  Company Number: 2004243702SE

PATIENT
  Age: 31 Year
  Sex: Male

DRUGS (3)
  1. BEXTRA [Suspect]
     Indication: ANALGESIC DRUG LEVEL THERAPEUTIC
     Dosage: 40 MG, QD, ORAL
     Route: 048
     Dates: start: 20040826, end: 20040830
  2. LEVAXIN (LEVOTHYROXINE SODIUM) [Concomitant]
  3. ACETAMINOPHEN [Concomitant]

REACTIONS (5)
  - LIP ULCERATION [None]
  - MOUTH ULCERATION [None]
  - TONGUE INJURY [None]
  - TONGUE OEDEMA [None]
  - TONGUE ULCERATION [None]
